FAERS Safety Report 4761336-8 (Version None)
Quarter: 2005Q3

REPORT INFORMATION
  Report Type: 
  Country: None (occurrence: None)
  Receive Date: 20050830
  Receipt Date: 20050726
  Transmission Date: 20060218
  Serious: No
  Sender: FDA-Public Use
  Company Number: FABR-11023

PATIENT
  Age: 51 Year
  Sex: Female
  Weight: 59.8748 kg

DRUGS (4)
  1. FABRAZYME [Suspect]
     Indication: FABRY'S DISEASE
     Dosage: 60 MG Q2WKS IV
     Route: 042
     Dates: start: 20050105
  2. AMBIEN [Concomitant]
  3. TYLENOL [Concomitant]
  4. HYDROXYZINE [Concomitant]

REACTIONS (5)
  - CHILLS [None]
  - COUGH [None]
  - HEADACHE [None]
  - OTITIS MEDIA [None]
  - PHARYNGOLARYNGEAL PAIN [None]
